FAERS Safety Report 18182861 (Version 1)
Quarter: 2020Q3

REPORT INFORMATION
  Report Type: Other
  Country: NP (occurrence: NP)
  Receive Date: 20200821
  Receipt Date: 20200821
  Transmission Date: 20201103
  Serious: Yes (Life-Threatening, Hospitalization)
  Sender: FDA-Public Use
  Company Number: NP-NOSTRUM LABORATORIES, INC.-2088909

PATIENT
  Age: 33 Year
  Sex: Male

DRUGS (1)
  1. ACETAZOLAMIDE EXTENDED?RELEASE [Suspect]
     Active Substance: ACETAZOLAMIDE
     Indication: HYPOBARISM
     Route: 048

REACTIONS (8)
  - Metabolic acidosis [Recovered/Resolved]
  - Hyperglycaemia [Recovered/Resolved]
  - Accidental overdose [Recovered/Resolved]
  - Dehydration [Recovered/Resolved]
  - Hypotension [Recovered/Resolved]
  - Acute respiratory failure [Recovered/Resolved]
  - Hypovolaemic shock [Recovered/Resolved]
  - Hyponatraemia [Recovered/Resolved]
